FAERS Safety Report 12396110 (Version 2)
Quarter: 2016Q2

REPORT INFORMATION
  Report Type: Spontaneous
  Country: US (occurrence: US)
  Receive Date: 20160524
  Receipt Date: 20160524
  Transmission Date: 20160815
  Serious: No
  Sender: FDA-Public Use
  Company Number: US-CIPLA LTD.-2016US05448

PATIENT

DRUGS (5)
  1. TOPIRAMATE. [Suspect]
     Active Substance: TOPIRAMATE
     Dosage: 100 MG, UNK, SINCE 15 YEARS TO ONGOING
     Route: 048
  2. RESCUE INHALER [Concomitant]
     Dosage: UNK
  3. MULTIVITAMIN TABLETS [Concomitant]
     Dosage: UNK
     Route: 048
  4. PLAQUENIL TABLETS [Concomitant]
     Dosage: UNK
     Route: 048
  5. FOLIC ACID TABLETS [Concomitant]
     Active Substance: FOLIC ACID
     Dosage: UNK
     Route: 048

REACTIONS (1)
  - Dyspnoea [Not Recovered/Not Resolved]

NARRATIVE: CASE EVENT DATE: 20150811
